FAERS Safety Report 6179673-1 (Version None)
Quarter: 2009Q2

REPORT INFORMATION
  Report Type: 
  Country: None (occurrence: None)
  Receive Date: 20090505
  Receipt Date: 20090430
  Transmission Date: 20091009
  Serious: Yes (Death)
  Sender: FDA-Public Use
  Company Number: PHHY2009CA09638

PATIENT
  Sex: Male

DRUGS (2)
  1. DESFERAL [Suspect]
     Indication: IRON OVERLOAD
     Dosage: UNK
     Dates: start: 20080925, end: 20081113
  2. EXJADE [Suspect]
     Indication: IRON OVERLOAD
     Dosage: UNK
     Dates: end: 20080925

REACTIONS (4)
  - DISEASE PROGRESSION [None]
  - INJECTION SITE DISCOMFORT [None]
  - INJECTION SITE INFLAMMATION [None]
  - MYELODYSPLASTIC SYNDROME [None]
